FAERS Safety Report 25484909 (Version 1)
Quarter: 2025Q2

REPORT INFORMATION
  Report Type: Spontaneous
  Country: US (occurrence: US)
  Receive Date: 20250626
  Receipt Date: 20250626
  Transmission Date: 20250717
  Serious: Yes (Other)
  Sender: SANOFI AVENTIS
  Company Number: US-SA-2025SA178688

PATIENT
  Age: 9 Year
  Sex: Female

DRUGS (1)
  1. DUPIXENT [Suspect]
     Active Substance: DUPILUMAB
     Indication: Dermatitis atopic
     Dosage: 300 MG, QM
     Dates: start: 2023

REACTIONS (6)
  - Idiopathic intracranial hypertension [Unknown]
  - Headache [Unknown]
  - Rebound atopic dermatitis [Unknown]
  - Rash macular [Unknown]
  - Skin discolouration [Unknown]
  - Skin exfoliation [Unknown]
